FAERS Safety Report 7448360-1 (Version None)
Quarter: 2011Q2

REPORT INFORMATION
  Report Type: 
  Country: None (occurrence: None)
  Receive Date: 20110429
  Receipt Date: 20100518
  Transmission Date: 20111010
  Serious: No
  Sender: FDA-Public Use
  Company Number: US-ASTRAZENECA-2010SE22975

PATIENT
  Age: 28574 Day
  Sex: Male
  Weight: 88.5 kg

DRUGS (2)
  1. NEXIUM [Suspect]
     Route: 048
  2. NEXIUM [Suspect]
     Indication: GASTROOESOPHAGEAL REFLUX DISEASE
     Route: 048
     Dates: start: 20010101

REACTIONS (4)
  - GASTRIC DISORDER [None]
  - ABDOMINAL PAIN UPPER [None]
  - OROPHARYNGEAL PAIN [None]
  - OBSTRUCTION [None]
